FAERS Safety Report 25410147 (Version 1)
Quarter: 2025Q2

REPORT INFORMATION
  Report Type: Other
  Country: ES (occurrence: ES)
  Receive Date: 20250607
  Receipt Date: 20250607
  Transmission Date: 20250717
  Serious: Yes (Death, Other)
  Sender: KNIGHT THERAPEUTICS
  Company Number: ES-Knight Therapeutics (USA) Inc.-2178235

PATIENT
  Age: 52 Year
  Sex: Female

DRUGS (4)
  1. IMPAVIDO [Suspect]
     Active Substance: MILTEFOSINE
     Indication: Scedosporium infection
  2. VORICONAZOLE [Suspect]
     Active Substance: VORICONAZOLE
  3. AMPHOTERICIN B [Suspect]
     Active Substance: AMPHOTERICIN B
  4. TERBINAFINE [Suspect]
     Active Substance: TERBINAFINE

REACTIONS (3)
  - Product use in unapproved indication [Recovered/Resolved]
  - Drug ineffective [Recovered/Resolved]
  - Post transplant lymphoproliferative disorder [Fatal]
